FAERS Safety Report 5593005-9 (Version None)
Quarter: 2008Q1

REPORT INFORMATION
  Report Type: 
  Country: None (occurrence: None)
  Receive Date: 20080114
  Receipt Date: 20080109
  Transmission Date: 20080703
  Serious: Yes (Congenital Anomaly)
  Sender: FDA-Public Use
  Company Number: 2007SP016233

PATIENT
  Age: 1 Day
  Sex: Female
  Weight: 2.835 kg

DRUGS (2)
  1. PEG-INTRON [Suspect]
     Indication: HEPATITIS C
     Dosage: TRPL
     Route: 064
     Dates: end: 20060601
  2. REBETOL [Suspect]
     Indication: HEPATITIS C
     Dosage: TRPL
     Route: 064
     Dates: end: 20060601

REACTIONS (4)
  - DRUG EXPOSURE DURING PREGNANCY [None]
  - GLUCOSE-6-PHOSPHATE DEHYDROGENASE DEFICIENCY [None]
  - HAEMORRHAGE [None]
  - HEPATITIS C POSITIVE [None]
